FAERS Safety Report 14655492 (Version 1)
Quarter: 2018Q1

REPORT INFORMATION
  Report Type: Spontaneous
  Country: IN (occurrence: IN)
  Receive Date: 20180319
  Receipt Date: 20180319
  Transmission Date: 20180509
  Serious: Yes (Hospitalization, Other)
  Sender: FDA-Public Use
  Company Number: IN-IMPAX LABORATORIES, INC-2018-IPXL-00813

PATIENT
  Age: 29 Year
  Sex: Female

DRUGS (4)
  1. CABERGOLINE. [Suspect]
     Active Substance: CABERGOLINE
     Indication: PROLACTIN-PRODUCING PITUITARY TUMOUR
     Dosage: 0.5 MG, 1 /WEEK
     Route: 065
  2. ESCITALOPRAM [Suspect]
     Active Substance: ESCITALOPRAM OXALATE
     Indication: GRIEF REACTION
  3. OLANZAPINE. [Suspect]
     Active Substance: OLANZAPINE
     Indication: DELUSION
     Dosage: 10 MG, DAILY
     Route: 065
  4. ESCITALOPRAM [Suspect]
     Active Substance: ESCITALOPRAM OXALATE
     Indication: SUICIDAL IDEATION
     Dosage: 5-10 MG, DAILY
     Route: 065

REACTIONS (12)
  - Hypomania [Recovered/Resolved]
  - Insomnia [Recovered/Resolved]
  - Intentional self-injury [Recovered/Resolved]
  - Decreased appetite [Recovered/Resolved]
  - Weight increased [Unknown]
  - Crying [Recovered/Resolved]
  - Agitation [Recovered/Resolved]
  - Headache [Recovered/Resolved]
  - Anger [Recovered/Resolved]
  - Delusion [Recovering/Resolving]
  - Suicidal ideation [Recovered/Resolved]
  - Grief reaction [Recovered/Resolved]
